FAERS Safety Report 7392193-1 (Version None)
Quarter: 2011Q2

REPORT INFORMATION
  Report Type: 
  Country: None (occurrence: None)
  Receive Date: 20110404
  Receipt Date: 20110328
  Transmission Date: 20111010
  Serious: Yes (Other)
  Sender: FDA-Public Use
  Company Number: B0709613A

PATIENT
  Sex: Male

DRUGS (1)
  1. REQUIP [Suspect]
     Indication: PARKINSON'S DISEASE
     Route: 065
     Dates: start: 20050101

REACTIONS (4)
  - AFFECTIVE DISORDER [None]
  - COMPULSIVE SHOPPING [None]
  - PERSECUTORY DELUSION [None]
  - PERSONALITY DISORDER [None]
